FAERS Safety Report 4646993-9 (Version None)
Quarter: 2005Q2

REPORT INFORMATION
  Report Type: 
  Country: None (occurrence: None)
  Receive Date: 20050331
  Receipt Date: 20050210
  Transmission Date: 20051028
  Serious: No
  Sender: FDA-Public Use
  Company Number: 05P-163-0290165

PATIENT
  Age: 66 Year
  Sex: Female
  Weight: 57.6068 kg

DRUGS (9)
  1. HUMIRA [Suspect]
     Indication: RHEUMATOID ARTHRITIS
     Dosage: 40 MG, 1 IN 1 WK, SUBCUTANEOUS
     Route: 058
     Dates: start: 20040115
  2. PREDNISONE [Concomitant]
  3. HYDROCHOROT [Concomitant]
  4. COUMADIN [Concomitant]
  5. LANSOPRAZOLE [Concomitant]
  6. ATORVASTATIN CALCIUM [Concomitant]
  7. MESALAMINE [Concomitant]
  8. GABAPENTIN [Concomitant]
  9. LORAZEPAM [Concomitant]

REACTIONS (1)
  - TOOTH ABSCESS [None]
